FAERS Safety Report 17376175 (Version 3)
Quarter: 2020Q2

REPORT INFORMATION
  Report Type: Spontaneous
  Country: CA (occurrence: CA)
  Receive Date: 20200206
  Receipt Date: 20200608
  Transmission Date: 20200713
  Serious: Yes (Other)
  Sender: FDA-Public Use
  Company Number: CA-CELLTRION INC.-2020CA018218

PATIENT

DRUGS (2)
  1. INFLECTRA [Suspect]
     Active Substance: INFLIXIMAB-DYYB
     Indication: COLITIS ULCERATIVE
     Dosage: 700 MG, (EVERY 6 WEEKS)
     Route: 042
     Dates: start: 20200127, end: 20200127
  2. SOLU-CORTEF [Concomitant]
     Active Substance: HYDROCORTISONE SODIUM SUCCINATE
     Dosage: 200 MG
     Route: 042
     Dates: start: 20200127, end: 20200127

REACTIONS (13)
  - Back pain [Recovered/Resolved]
  - Urine analysis abnormal [Unknown]
  - Pleuritic pain [Unknown]
  - Skin disorder [Unknown]
  - Off label use [Unknown]
  - Nephrolithiasis [Unknown]
  - Product use issue [Unknown]
  - Urticaria [Unknown]
  - Rash [Unknown]
  - Eye swelling [Unknown]
  - Swelling [Unknown]
  - Dyspnoea [Unknown]
  - Drug hypersensitivity [Unknown]

NARRATIVE: CASE EVENT DATE: 202001
